FAERS Safety Report 15484303 (Version 1)
Quarter: 2018Q3

REPORT INFORMATION
  Report Type: Spontaneous
  Country: US (occurrence: US)
  Receive Date: 20180928
  Receipt Date: 20180928
  Transmission Date: 20181020
  Serious: No
  Sender: FDA-Public Use
  Company Number: US-AMGEN-USASP2018109337

PATIENT
  Sex: Female

DRUGS (2)
  1. MESALAMINE. [Suspect]
     Active Substance: MESALAMINE
     Indication: ULCER
     Dosage: 1.2 G, UNK
     Route: 065
     Dates: start: 20170830
  2. PROLIA [Suspect]
     Active Substance: DENOSUMAB
     Indication: PRODUCT USED FOR UNKNOWN INDICATION
     Dosage: UNK
     Route: 065

REACTIONS (4)
  - Pruritus [Unknown]
  - Dry throat [Unknown]
  - Vertigo [Unknown]
  - Rash [Unknown]

NARRATIVE: CASE EVENT DATE: 20180806
